FAERS Safety Report 12927113 (Version 5)
Quarter: 2016Q4

REPORT INFORMATION
  Report Type: Report from Study
  Country: IT (occurrence: IT)
  Receive Date: 20161109
  Receipt Date: 20161228
  Transmission Date: 20170207
  Serious: Yes (Hospitalization)
  Sender: FDA-Public Use
  Company Number: IT-EXELIXIS-CABO-16007470

PATIENT
  Age: 50 Year
  Sex: Male
  Weight: 56 kg

DRUGS (11)
  1. EVEROLIMUS [Suspect]
     Active Substance: EVEROLIMUS
     Route: 048
  2. PARACALCITOLO [Concomitant]
  3. EPOETIN ZETA [Concomitant]
     Active Substance: ERYTHROPOIETIN
  4. CERTICAN [Concomitant]
     Active Substance: EVEROLIMUS
  5. PREDNISOLONE. [Concomitant]
     Active Substance: PREDNISOLONE
  6. ALLOPURINOLO [Concomitant]
     Active Substance: ALLOPURINOL
  7. EZETIMIBE. [Concomitant]
     Active Substance: EZETIMIBE
  8. CABOMETYX [Suspect]
     Active Substance: CABOZANTINIB S-MALATE
     Dosage: 40 MG, QOD
     Route: 048
     Dates: start: 20161118
  9. ATENOLOLO [Concomitant]
     Active Substance: ATENOLOL
  10. MEGESTROLO ACETATO [Concomitant]
  11. CABOMETYX [Suspect]
     Active Substance: CABOZANTINIB S-MALATE
     Indication: RENAL CANCER METASTATIC
     Dosage: 60 MG, ONE DAY ON AND ONE DAY OFF
     Route: 048
     Dates: start: 20161021, end: 20161028

REACTIONS (4)
  - Drug level decreased [Unknown]
  - Gamma-glutamyltransferase increased [Recovered/Resolved]
  - Pain in extremity [Recovered/Resolved]
  - General physical health deterioration [Unknown]

NARRATIVE: CASE EVENT DATE: 20161028
